FAERS Safety Report 21117772 (Version 3)
Quarter: 2022Q3

REPORT INFORMATION
  Report Type: Spontaneous
  Country: US (occurrence: None)
  Receive Date: 20220722
  Receipt Date: 20220901
  Transmission Date: 20221027
  Serious: No
  Sender: FDA-Public Use
  Company Number: 2022A260107

PATIENT
  Age: 23843 Day
  Sex: Male
  Weight: 115.7 kg

DRUGS (2)
  1. BYDUREON BCISE [Suspect]
     Active Substance: EXENATIDE
     Indication: Type 2 diabetes mellitus
     Route: 058
  2. BYDUREON [Concomitant]
     Active Substance: EXENATIDE
     Indication: Type 2 diabetes mellitus

REACTIONS (6)
  - Injection site erythema [Unknown]
  - Injection site nodule [Recovered/Resolved]
  - Injection site haemorrhage [Recovered/Resolved]
  - Injection site extravasation [Unknown]
  - Device leakage [Unknown]
  - Needle issue [Unknown]

NARRATIVE: CASE EVENT DATE: 20220718
